FAERS Safety Report 10364437 (Version 1)
Quarter: 2014Q3

REPORT INFORMATION
  Report Type: Spontaneous
  Country: US (occurrence: None)
  Receive Date: 20140804
  Receipt Date: 20140804
  Transmission Date: 20150326
  Serious: No
  Sender: FDA-Public Use
  Company Number: None

PATIENT
  Age: 50 Year
  Sex: Female
  Weight: 113.4 kg

DRUGS (3)
  1. ESCITALOPRAM [Suspect]
     Active Substance: ESCITALOPRAM OXALATE
     Indication: DEPRESSION
     Dosage: 1 PLLL PER DAY
     Route: 048
     Dates: start: 20140726, end: 20140731
  2. ESCITALOPRAM [Suspect]
     Active Substance: ESCITALOPRAM OXALATE
     Indication: GENERALISED ANXIETY DISORDER
     Dosage: 1 PLLL PER DAY
     Route: 048
     Dates: start: 20140726, end: 20140731
  3. ESCITALOPRAM [Suspect]
     Active Substance: ESCITALOPRAM OXALATE
     Indication: PANIC ATTACK
     Dosage: 1 PLLL PER DAY
     Route: 048
     Dates: start: 20140726, end: 20140731

REACTIONS (8)
  - Anger [None]
  - Drug ineffective [None]
  - Panic attack [None]
  - Anxiety [None]
  - Condition aggravated [None]
  - Product substitution issue [None]
  - Depression [None]
  - Suicidal ideation [None]

NARRATIVE: CASE EVENT DATE: 20140801
